FAERS Safety Report 18806736 (Version 4)
Quarter: 2021Q1

REPORT INFORMATION
  Report Type: Spontaneous
  Country: US (occurrence: US)
  Receive Date: 20210129
  Receipt Date: 20210224
  Transmission Date: 20210419
  Serious: Yes (Other)
  Sender: FDA-Public Use
  Company Number: US-ROCHE-2759558

PATIENT
  Sex: Female

DRUGS (4)
  1. TUKYSA [Suspect]
     Active Substance: TUCATINIB
     Indication: BREAST CANCER METASTATIC
  2. XELODA [Suspect]
     Active Substance: CAPECITABINE
     Indication: PRODUCT USED FOR UNKNOWN INDICATION
     Route: 065
     Dates: start: 202010
  3. TUKYSA [Suspect]
     Active Substance: TUCATINIB
     Indication: BREAST CANCER FEMALE
     Route: 065
     Dates: start: 202010
  4. HERCEPTIN [Suspect]
     Active Substance: TRASTUZUMAB
     Indication: PRODUCT USED FOR UNKNOWN INDICATION
     Route: 065
     Dates: start: 202010

REACTIONS (18)
  - Gastrointestinal inflammation [Unknown]
  - Weight decreased [Unknown]
  - Parosmia [Unknown]
  - Lung disorder [Unknown]
  - Feeling hot [Unknown]
  - Feeling abnormal [Unknown]
  - Decreased appetite [Unknown]
  - Therapy change [Unknown]
  - Dry skin [Unknown]
  - Acne [Recovered/Resolved]
  - Metastases to central nervous system [Recovered/Resolved]
  - Muscle spasms [Unknown]
  - Gastrointestinal disorder [Unknown]
  - Erythema [Unknown]
  - Fatigue [Recovering/Resolving]
  - Coeliac disease [Unknown]
  - Diarrhoea [Unknown]
  - Pruritus [Unknown]
